FAERS Safety Report 19690541 (Version 2)
Quarter: 2021Q3

REPORT INFORMATION
  Report Type: Spontaneous
  Country: US (occurrence: US)
  Receive Date: 20210812
  Receipt Date: 20210924
  Transmission Date: 20211014
  Serious: Yes (Life-Threatening, Hospitalization, Other)
  Sender: FDA-Public Use
  Company Number: US-GLAXOSMITHKLINE-US2021AMR168948

PATIENT
  Age: 19 Year
  Sex: Female

DRUGS (1)
  1. LAMOTRIGINE. [Suspect]
     Active Substance: LAMOTRIGINE
     Indication: PRODUCT USED FOR UNKNOWN INDICATION
     Dosage: UNK

REACTIONS (14)
  - Rash [Unknown]
  - Eosinophil count increased [Unknown]
  - Motor dysfunction [Unknown]
  - Aphasia [Unknown]
  - Pyrexia [Unknown]
  - Tremor [Unknown]
  - Pruritus [Unknown]
  - Lymphadenopathy [Unknown]
  - Diplopia [Unknown]
  - Drug reaction with eosinophilia and systemic symptoms [Unknown]
  - Swelling [Unknown]
  - Central nervous system inflammation [Unknown]
  - Meningitis [Unknown]
  - Arthralgia [Unknown]

NARRATIVE: CASE EVENT DATE: 20210324
